FAERS Safety Report 4493884-2 (Version None)
Quarter: 2004Q4

REPORT INFORMATION
  Report Type: 
  Country: None (occurrence: None)
  Receive Date: 20041105
  Receipt Date: 20041025
  Transmission Date: 20050328
  Serious: Yes (Hospitalization)
  Sender: FDA-Public Use
  Company Number: US-JNJFOC-20041007696

PATIENT
  Sex: Female
  Weight: 93.44 kg

DRUGS (4)
  1. REMICADE [Suspect]
     Indication: RHEUMATOID ARTHRITIS
     Route: 042
  2. METHOTREXATE [Concomitant]
     Indication: RHEUMATOID ARTHRITIS
  3. PREVACID [Concomitant]
  4. ESTRADIOL [Concomitant]
     Indication: HORMONE REPLACEMENT THERAPY

REACTIONS (1)
  - ATRIAL FIBRILLATION [None]
